FAERS Safety Report 10891819 (Version 1)
Quarter: 2015Q1

REPORT INFORMATION
  Report Type: Spontaneous
  Country: US (occurrence: US)
  Receive Date: 20150306
  Receipt Date: 20150306
  Transmission Date: 20150721
  Serious: Yes (Other)
  Sender: FDA-Public Use
  Company Number: US-JNJFOC-20150217770

PATIENT
  Sex: Male

DRUGS (3)
  1. TRELSTAR [Concomitant]
     Active Substance: TRIPTORELIN PAMOATE
     Route: 065
  2. ZYTIGA [Suspect]
     Active Substance: ABIRATERONE ACETATE
     Indication: PRODUCT USED FOR UNKNOWN INDICATION
     Route: 048
  3. PREDNISONE. [Suspect]
     Active Substance: PREDNISONE
     Indication: PRODUCT USED FOR UNKNOWN INDICATION
     Route: 065

REACTIONS (3)
  - Lung carcinoma cell type unspecified recurrent [Unknown]
  - Hepatic function abnormal [Unknown]
  - Brain natriuretic peptide abnormal [Unknown]
